FAERS Safety Report 15471481 (Version 1)
Quarter: 2018Q4

REPORT INFORMATION
  Report Type: Spontaneous
  Country: DE (occurrence: DE)
  Receive Date: 20181007
  Receipt Date: 20181007
  Transmission Date: 20190205
  Serious: Yes (Hospitalization, Other)
  Sender: FDA-Public Use
  Company Number: DE-TORRENT-00010657

PATIENT
  Age: 13 Year
  Sex: Female
  Weight: 65 kg

DRUGS (2)
  1. RISPERIDONE. [Suspect]
     Active Substance: RISPERIDONE
     Indication: PRODUCT USED FOR UNKNOWN INDICATION
     Dosage: UNKNOWN
  2. ABILIFY [Suspect]
     Active Substance: ARIPIPRAZOLE
     Indication: TOURETTE^S DISORDER
     Dosage: DAILY DOSE: 2 MG MILLIGRAM(S) EVERY DAY
     Route: 048
     Dates: start: 201303, end: 20131007

REACTIONS (10)
  - Product use in unapproved indication [Unknown]
  - Off label use [Unknown]
  - Dizziness [Recovered/Resolved]
  - Blepharospasm [Recovered/Resolved]
  - Dystonia [Recovered/Resolved]
  - Eyelid ptosis [Recovered/Resolved]
  - Hypoaesthesia [Recovered/Resolved]
  - Product use issue [Unknown]
  - Facial paralysis [Recovered/Resolved]
  - Paraesthesia [Recovered/Resolved]

NARRATIVE: CASE EVENT DATE: 20131007
